FAERS Safety Report 9628996 (Version 2)
Quarter: 2013Q4

REPORT INFORMATION
  Report Type: Spontaneous
  Country: US (occurrence: US)
  Receive Date: 20131017
  Receipt Date: 20131017
  Transmission Date: 20140711
  Serious: Yes (Hospitalization)
  Sender: FDA-Public Use
  Company Number: US-BAXTER-2013BAX025600

PATIENT
  Age: 71 Year
  Sex: Male

DRUGS (2)
  1. DIANEAL LOW CALCIUM [Suspect]
     Indication: PERITONEAL DIALYSIS
     Dosage: STARTED 3 YRS AGO
     Route: 033
  2. INSULIN [Suspect]
     Indication: DIABETES MELLITUS
     Route: 058
     Dates: start: 201306

REACTIONS (1)
  - Vomiting [Recovered/Resolved]
